FAERS Safety Report 16741128 (Version 2)
Quarter: 2019Q3

REPORT INFORMATION
  Report Type: Spontaneous
  Country: US (occurrence: US)
  Receive Date: 20190826
  Receipt Date: 20190930
  Transmission Date: 20191005
  Serious: Yes (Life-Threatening, Other)
  Sender: FDA-Public Use
  Company Number: US-PFIZER INC-2019361980

PATIENT
  Age: 58 Year
  Sex: Female

DRUGS (1)
  1. RELPAX [Suspect]
     Active Substance: ELETRIPTAN HYDROBROMIDE
     Indication: MIGRAINE
     Dosage: 40 MG, AS NEEDED
     Route: 048

REACTIONS (5)
  - Thrombosis [Recovering/Resolving]
  - Fall [Recovering/Resolving]
  - Recalled product administered [Unknown]
  - Product contamination microbial [Unknown]
  - Fatigue [Unknown]

NARRATIVE: CASE EVENT DATE: 201807
